FAERS Safety Report 25682395 (Version 1)
Quarter: 2025Q3

REPORT INFORMATION
  Report Type: Spontaneous
  Country: US (occurrence: US)
  Receive Date: 20250814
  Receipt Date: 20250814
  Transmission Date: 20251020
  Serious: No
  Sender: DR REDDYS
  Company Number: US-DRL-USA-USA/2025/07/011560

PATIENT
  Age: 25 Year
  Sex: Female

DRUGS (4)
  1. CETIRIZINE [Suspect]
     Active Substance: CETIRIZINE HYDROCHLORIDE
     Indication: Premedication
  2. FAMOTIDINE [Suspect]
     Active Substance: FAMOTIDINE
     Indication: Premedication
  3. PREDNISONE [Concomitant]
     Active Substance: PREDNISONE
     Indication: Premedication
  4. DIPHENHYDRAMINE [Concomitant]
     Active Substance: DIPHENHYDRAMINE
     Indication: Premedication

REACTIONS (1)
  - Drug ineffective for unapproved indication [Unknown]
